FAERS Safety Report 17682916 (Version 1)
Quarter: 2020Q2

REPORT INFORMATION
  Report Type: Spontaneous
  Country: CH (occurrence: CH)
  Receive Date: 20200420
  Receipt Date: 20200420
  Transmission Date: 20200714
  Serious: Yes (Other)
  Sender: FDA-Public Use
  Company Number: CH-BRISTOL-MYERS SQUIBB COMPANY-BMS-2020-032078

PATIENT
  Age: 79 Year
  Sex: Female

DRUGS (2)
  1. NIVOLUMAB [Suspect]
     Active Substance: NIVOLUMAB
     Indication: MALIGNANT MELANOMA
     Dosage: ^DOSE NON PRECISEE^ IN TOTAL
     Route: 041
     Dates: start: 20171017, end: 20171017
  2. IPILIMUMAB [Suspect]
     Active Substance: IPILIMUMAB
     Indication: MALIGNANT MELANOMA
     Dosage: ^DOSE NON PRECISEE^ IN TOTAL
     Route: 041
     Dates: start: 20171017, end: 20171017

REACTIONS (2)
  - Autoimmune thyroiditis [Recovered/Resolved]
  - Type 1 diabetes mellitus [Not Recovered/Not Resolved]

NARRATIVE: CASE EVENT DATE: 20171107
